FAERS Safety Report 4409992-8 (Version None)
Quarter: 2004Q3

REPORT INFORMATION
  Report Type: 
  Country: None (occurrence: None)
  Receive Date: 20040728
  Receipt Date: 20040707
  Transmission Date: 20050211
  Serious: Yes (Other)
  Sender: FDA-Public Use
  Company Number: FR-ROCHE-373737

PATIENT
  Age: 26 Year
  Sex: Male
  Weight: 65 kg

DRUGS (2)
  1. ROACCUTANE [Suspect]
     Indication: DRUG USE FOR UNKNOWN INDICATION
     Route: 065
  2. ROACCUTANE [Suspect]
     Route: 065

REACTIONS (9)
  - AMNESIA [None]
  - DEPRESSION [None]
  - DRY SKIN [None]
  - EAR DISORDER [None]
  - FATIGUE [None]
  - HEARING IMPAIRED [None]
  - SUICIDAL IDEATION [None]
  - VERTIGO [None]
  - VISUAL DISTURBANCE [None]
